FAERS Safety Report 16658062 (Version 1)
Quarter: 2019Q3

REPORT INFORMATION
  Report Type: Spontaneous
  Country: SE (occurrence: SE)
  Receive Date: 20190801
  Receipt Date: 20190801
  Transmission Date: 20191004
  Serious: Yes (Hospitalization)
  Sender: FDA-Public Use
  Company Number: SE-TEVA-2019-SE-1086643

PATIENT
  Age: 77 Year
  Sex: Male

DRUGS (6)
  1. MIRTAZAPINE. [Concomitant]
     Active Substance: MIRTAZAPINE
     Dosage: ^1/2 TABL AT E.M. AND 1 TABL EVENING^
     Dates: start: 20181218
  2. HEMINEVRIN 300 MG KAPSEL, MJUK [Concomitant]
     Dosage: 1-2 CAPSULES V.B. MAXIMUM 3 CAPSULES / DAY.
  3. DIVISUN 800 IE TABLETT [Concomitant]
     Dates: start: 20180205
  4. AMOXICILLIN (ANHYDROUS) [Concomitant]
     Dates: start: 201903
  5. MADOPARK 100 MG/25 MG TABLETT [Concomitant]
     Dates: start: 20181115
  6. MEMANTINE. [Suspect]
     Active Substance: MEMANTINE
     Route: 065
     Dates: end: 201903

REACTIONS (1)
  - Muscle twitching [Unknown]

NARRATIVE: CASE EVENT DATE: 201903
